FAERS Safety Report 8043976-6 (Version None)
Quarter: 2012Q1

REPORT INFORMATION
  Report Type: 
  Country: None (occurrence: None)
  Receive Date: 20120113
  Receipt Date: 20120105
  Transmission Date: 20120608
  Serious: No
  Sender: FDA-Public Use
  Company Number: US-BIOGENIDEC-2012BI000619

PATIENT
  Age: 55 Year
  Sex: Female

DRUGS (3)
  1. AVONEX [Suspect]
     Route: 030
     Dates: start: 20010901, end: 20030301
  2. AVONEX [Suspect]
     Indication: MULTIPLE SCLEROSIS
     Route: 030
     Dates: start: 20031201, end: 20040101
  3. AVONEX [Suspect]
     Route: 030
     Dates: start: 20040101

REACTIONS (3)
  - BLOOD PRESSURE INCREASED [None]
  - NEUROGENIC BLADDER [None]
  - WHITE BLOOD CELL COUNT DECREASED [None]
